FAERS Safety Report 7082435-4 (Version None)
Quarter: 2010Q4

REPORT INFORMATION
  Report Type: 
  Country: None (occurrence: None)
  Receive Date: 20101104
  Receipt Date: 20101026
  Transmission Date: 20110411
  Serious: No
  Sender: FDA-Public Use
  Company Number: 2010BI001737

PATIENT
  Sex: Female

DRUGS (2)
  1. TYSABRI [Suspect]
     Indication: MULTIPLE SCLEROSIS
     Route: 042
     Dates: start: 20070828, end: 20071215
  2. TYSABRI [Suspect]
     Route: 042
     Dates: start: 20091207

REACTIONS (9)
  - BLOOD PRESSURE ABNORMAL [None]
  - GINGIVAL INFECTION [None]
  - HYPERTENSION [None]
  - NERVE INJURY [None]
  - TOOTH DISORDER [None]
  - TOOTH INFECTION [None]
  - TOOTHACHE [None]
  - VISUAL IMPAIRMENT [None]
  - WHITE BLOOD CELL COUNT DECREASED [None]
